FAERS Safety Report 7193460-7 (Version None)
Quarter: 2010Q4

REPORT INFORMATION
  Report Type: 
  Country: None (occurrence: None)
  Receive Date: 20101124
  Receipt Date: 20100908
  Transmission Date: 20110411
  Serious: No
  Sender: FDA-Public Use
  Company Number: 018507

PATIENT
  Age: 29 Year
  Sex: Male

DRUGS (5)
  1. LACOSAMIDE [Suspect]
     Indication: EPILEPSY
  2. PHENYTOIN [Concomitant]
  3. PREGABALIN [Concomitant]
  4. OXCARBAZEPINE [Concomitant]
  5. TIAGABINE HCL [Concomitant]

REACTIONS (1)
  - DIZZINESS [None]
